FAERS Safety Report 8414230-5 (Version None)
Quarter: 2012Q2

REPORT INFORMATION
  Report Type: 
  Country: None (occurrence: None)
  Receive Date: 20120605
  Receipt Date: 20120530
  Transmission Date: 20120825
  Serious: Yes (Other)
  Sender: FDA-Public Use
  Company Number: US-PFIZER INC-2012131267

PATIENT
  Sex: Male
  Weight: 68.027 kg

DRUGS (6)
  1. GLUCOSAMINE HYDROCHLORIDE/CHONDROITIN SULFATE [Concomitant]
     Indication: ARTHRITIS
     Dosage: [GLUCOSAMINE1500 MG/ CHONDROITIN 1200 MG], TWO TABLETS, DAILY
  2. SIMVASTATIN [Suspect]
     Indication: BLOOD CHOLESTEROL INCREASED
     Dosage: UNK, DAILY
  3. MEVACOR [Suspect]
     Dosage: UNK, DAILY
  4. OMEPRAZOLE [Concomitant]
     Indication: HIATUS HERNIA
     Dosage: 20 MG, DAILY
  5. LIPITOR [Suspect]
     Indication: BLOOD CHOLESTEROL INCREASED
     Dosage: 20 MG OR 40MG, DAILY
  6. METOPROLOL [Concomitant]
     Indication: PULSE ABNORMAL
     Dosage: 12.5 MG, DAILY

REACTIONS (3)
  - HEPATIC ENZYME INCREASED [None]
  - ANAEMIA HAEMOLYTIC AUTOIMMUNE [None]
  - MUSCLE SPASMS [None]
